FAERS Safety Report 4506641-5 (Version None)
Quarter: 2004Q4

REPORT INFORMATION
  Report Type: 
  Country: None (occurrence: None)
  Receive Date: 20041117
  Receipt Date: 20041004
  Transmission Date: 20050328
  Serious: Yes (Disabling, Other)
  Sender: FDA-Public Use
  Company Number: 2004014973

PATIENT
  Sex: Female

DRUGS (7)
  1. ZOLOFT [Suspect]
     Indication: ILL-DEFINED DISORDER
  2. CELEBREX [Suspect]
     Indication: ILL-DEFINED DISORDER
  3. NEURONTIN [Suspect]
     Indication: ILL-DEFINED DISORDER
  4. LIPITOR [Suspect]
     Indication: ILL-DEFINED DISORDER
  5. ZYRTEC [Suspect]
     Indication: ILL-DEFINED DISORDER
  6. GLUCOTROL [Suspect]
  7. VALDECOXIB [Concomitant]

REACTIONS (21)
  - ABDOMINAL HERNIA [None]
  - BRAIN DAMAGE [None]
  - CIRCULATORY COLLAPSE [None]
  - COMA [None]
  - DIABETES MELLITUS [None]
  - DYSGRAPHIA [None]
  - ECONOMIC PROBLEM [None]
  - GANGRENE [None]
  - MEDICATION ERROR [None]
  - MENTAL IMPAIRMENT [None]
  - NERVOUS SYSTEM DISORDER [None]
  - PAIN [None]
  - PAROSMIA [None]
  - POST PROCEDURAL COMPLICATION [None]
  - POST PROCEDURAL DISCHARGE [None]
  - POSTOPERATIVE INFECTION [None]
  - READING DISORDER [None]
  - STAPHYLOCOCCAL INFECTION [None]
  - UMBILICAL HERNIA [None]
  - WEIGHT INCREASED [None]
  - WHEELCHAIR USER [None]
